FAERS Safety Report 14158941 (Version 2)
Quarter: 2017Q4

REPORT INFORMATION
  Report Type: Spontaneous
  Country: SE (occurrence: SE)
  Receive Date: 20171103
  Receipt Date: 20171117
  Transmission Date: 20180321
  Serious: Yes (Disabling)
  Sender: FDA-Public Use
  Company Number: SE-MERCK KGAA-2033207

PATIENT
  Age: 55 Year
  Sex: Female

DRUGS (2)
  1. NOVOTHYROX [Suspect]
     Active Substance: LEVOTHYROXINE SODIUM
     Indication: HYPOTHYROIDISM
     Dates: end: 20150430
  2. LEVAXIN [Suspect]
     Active Substance: LEVOTHYROXINE SODIUM
     Dates: start: 20130607, end: 20140604

REACTIONS (15)
  - Drug ineffective [Unknown]
  - Disturbance in attention [Unknown]
  - Headache [Unknown]
  - Oral discomfort [Unknown]
  - Arthralgia [Unknown]
  - Agitation [Unknown]
  - Listless [Unknown]
  - Insomnia [Unknown]
  - Fatigue [Unknown]
  - Feeling cold [Unknown]
  - Myalgia [Unknown]
  - Depression [Unknown]
  - Mental fatigue [Unknown]
  - Burning sensation [Unknown]
  - Anxiety [Unknown]

NARRATIVE: CASE EVENT DATE: 201306
